FAERS Safety Report 9539842 (Version 1)
Quarter: 2013Q2

REPORT INFORMATION
  Report Type: Spontaneous
  Country: US (occurrence: None)
  Receive Date: 20130521
  Receipt Date: 20130521
  Transmission Date: 20140414
  Serious: No
  Sender: FDA-Public Use
  Company Number: 1000042588

PATIENT
  Age: 60 Year
  Sex: Male

DRUGS (1)
  1. TUDORZA PRESSAIR [Suspect]
     Dosage: 400 MCG, 2 IN 1 D, RESPIRATORY (INHALATION)
     Dates: start: 20130208

REACTIONS (2)
  - Oedema peripheral [None]
  - Vision blurred [None]
